FAERS Safety Report 10494544 (Version 2)
Quarter: 2016Q1

REPORT INFORMATION
  Report Type: Spontaneous
  Country: US (occurrence: US)
  Receive Date: 20141003
  Receipt Date: 20160322
  Transmission Date: 20160525
  Serious: Yes (Other)
  Sender: FDA-Public Use
  Company Number: US-AMGEN-USASP2014075388

PATIENT
  Age: 60 Year
  Sex: Female
  Weight: 58.96 kg

DRUGS (2)
  1. IMITREX                            /01044802/ [Concomitant]
     Indication: MIGRAINE
     Dosage: 100 MG, UNK
     Route: 048
  2. NPLATE [Suspect]
     Active Substance: ROMIPLOSTIM
     Indication: IMMUNE THROMBOCYTOPENIC PURPURA
     Dosage: 60 MCG, QWK
     Route: 065
     Dates: start: 20150322

REACTIONS (10)
  - Abdominal distension [Unknown]
  - Vessel puncture site bruise [Unknown]
  - Anxiety [Unknown]
  - Platelet count abnormal [Unknown]
  - Visual impairment [Unknown]
  - Weight increased [Unknown]
  - Contusion [Unknown]
  - Epistaxis [Unknown]
  - Constipation [Unknown]
  - Migraine [Unknown]

NARRATIVE: CASE EVENT DATE: 201409
